FAERS Safety Report 25658972 (Version 1)
Quarter: 2025Q3

REPORT INFORMATION
  Report Type: Spontaneous
  Country: US (occurrence: US)
  Receive Date: 20250808
  Receipt Date: 20250808
  Transmission Date: 20251020
  Serious: Yes (Hospitalization)
  Sender: TEVA
  Company Number: US-TEVA-VS-3348392

PATIENT
  Age: 46 Year

DRUGS (1)
  1. UZEDY [Suspect]
     Active Substance: RISPERIDONE
     Indication: Schizoaffective disorder depressive type
     Dosage: 100/0.28MG/ML
     Route: 065

REACTIONS (4)
  - Hospitalisation [Unknown]
  - Feeling abnormal [Unknown]
  - Off label use [Unknown]
  - Product use issue [Unknown]

NARRATIVE: CASE EVENT DATE: 20250401
